FAERS Safety Report 4723966-9 (Version None)
Quarter: 2005Q3

REPORT INFORMATION
  Report Type: 
  Country: None (occurrence: None)
  Receive Date: 20050721
  Receipt Date: 20050708
  Transmission Date: 20060218
  Serious: Yes (Life-Threatening, Hospitalization, Disabling, Other)
  Sender: FDA-Public Use
  Company Number: 2005042730

PATIENT
  Age: 42 Year
  Sex: Male
  Weight: 68.18 kg

DRUGS (5)
  1. NEURONTIN [Suspect]
     Indication: BIPOLAR DISORDER
     Dosage: 900 MG (300 MG, 3 IN 1 D)
     Dates: start: 20020101
  2. NEURONTIN [Suspect]
     Indication: DEPRESSION
     Dosage: 900 MG (300 MG, 3 IN 1 D)
     Dates: start: 20020101
  3. PAXIL [Concomitant]
  4. THORAZINE [Concomitant]
  5. AMBIEN [Concomitant]

REACTIONS (31)
  - ABNORMAL BEHAVIOUR [None]
  - AGITATION [None]
  - ANOREXIA [None]
  - ATELECTASIS [None]
  - BLINDNESS [None]
  - BRAIN CONTUSION [None]
  - CATHETER RELATED COMPLICATION [None]
  - CEREBRAL HAEMORRHAGE [None]
  - COGNITIVE DISORDER [None]
  - DELIRIUM [None]
  - DIABETES INSIPIDUS [None]
  - DISORDER OF GLOBE [None]
  - DRUG INEFFECTIVE [None]
  - DYSPEPSIA [None]
  - DYSPHAGIA [None]
  - EYE EXCISION [None]
  - FACIAL BONES FRACTURE [None]
  - GUN SHOT WOUND [None]
  - HAEMORRHAGE [None]
  - HYPOCALCAEMIA [None]
  - HYPOMAGNESAEMIA [None]
  - LOSS OF CONSCIOUSNESS [None]
  - MALNUTRITION [None]
  - PLEURAL EFFUSION [None]
  - PNEUMOCEPHALUS [None]
  - PNEUMONIA BACTERIAL [None]
  - PSEUDOMONAS INFECTION [None]
  - PYREXIA [None]
  - RESPIRATORY FAILURE [None]
  - SOFT TISSUE INJURY [None]
  - SUICIDE ATTEMPT [None]
